FAERS Safety Report 9313833 (Version 2)
Quarter: 2013Q3

REPORT INFORMATION
  Report Type: Spontaneous
  Country: US (occurrence: US)
  Receive Date: 20130529
  Receipt Date: 20130902
  Transmission Date: 20140515
  Serious: No
  Sender: FDA-Public Use
  Company Number: US-BIOGENIDEC-2013BI047030

PATIENT
  Age: 32 Year
  Sex: Female

DRUGS (2)
  1. TYSABRI [Suspect]
     Indication: MULTIPLE SCLEROSIS
     Route: 042
  2. TYSABRI [Suspect]
     Indication: MULTIPLE SCLEROSIS
     Route: 042
     Dates: start: 20121119

REACTIONS (7)
  - Premenstrual syndrome [Not Recovered/Not Resolved]
  - Mood swings [Recovered/Resolved]
  - Menstruation irregular [Not Recovered/Not Resolved]
  - Menstrual disorder [Recovered/Resolved]
  - Muscular weakness [Recovered/Resolved]
  - Adverse event [Unknown]
  - Multiple sclerosis [Recovered/Resolved]
